FAERS Safety Report 7285928-X (Version None)
Quarter: 2011Q1

REPORT INFORMATION
  Report Type: 
  Country: None (occurrence: None)
  Receive Date: 20110210
  Receipt Date: 20110203
  Transmission Date: 20110831
  Serious: Yes (Other)
  Sender: FDA-Public Use
  Company Number: FR-MERCK-1102FRA00031

PATIENT
  Age: 20 Year
  Sex: Female

DRUGS (3)
  1. EMEND [Suspect]
     Route: 048
     Dates: start: 20110101, end: 20110102
  2. EMEND [Suspect]
     Indication: PROPHYLAXIS OF NAUSEA AND VOMITING
     Route: 048
     Dates: start: 20101231, end: 20101231
  3. IFOSFAMIDE [Suspect]
     Route: 042
     Dates: start: 20101231

REACTIONS (1)
  - ENCEPHALOPATHY [None]
